FAERS Safety Report 19430411 (Version 1)
Quarter: 2021Q2

REPORT INFORMATION
  Report Type: Spontaneous
  Country: US (occurrence: US)
  Receive Date: 20210618
  Receipt Date: 20210618
  Transmission Date: 20210717
  Serious: No
  Sender: FDA-Public Use
  Company Number: US-ROCHE-2735768

PATIENT
  Sex: Female
  Weight: 17.25 kg

DRUGS (3)
  1. ACTEMRA [Suspect]
     Active Substance: TOCILIZUMAB
  2. ACTEMRA [Suspect]
     Active Substance: TOCILIZUMAB
  3. ACTEMRA [Suspect]
     Active Substance: TOCILIZUMAB
     Indication: JUVENILE IDIOPATHIC ARTHRITIS
     Dosage: 162MG/0.9ML, ONCE A MONTH ;ONGOING: YES
     Route: 058
     Dates: start: 20191201

REACTIONS (3)
  - No adverse event [Unknown]
  - Needle issue [Unknown]
  - Product dose omission issue [Unknown]
